FAERS Safety Report 16657029 (Version 9)
Quarter: 2022Q2

REPORT INFORMATION
  Report Type: Spontaneous
  Country: US (occurrence: US)
  Receive Date: 20190801
  Receipt Date: 20220503
  Transmission Date: 20220721
  Serious: No
  Sender: FDA-Public Use
  Company Number: US-PFIZER INC-2019330160

PATIENT
  Age: 77 Year
  Sex: Female
  Weight: 68.027 kg

DRUGS (2)
  1. LYRICA [Suspect]
     Active Substance: PREGABALIN
     Indication: Post herpetic neuralgia
     Dosage: 100 MG, ONE A DAY
  2. LYRICA [Suspect]
     Active Substance: PREGABALIN
     Dosage: 100 MG, TWICE A DAY
     Route: 048
     Dates: start: 201212

REACTIONS (6)
  - Therapeutic product effect incomplete [Unknown]
  - Confusional state [Unknown]
  - Intentional product misuse [Unknown]
  - Drug effective for unapproved indication [Unknown]
  - Herpes zoster [Unknown]
  - Toothache [Unknown]
